FAERS Safety Report 20221824 (Version 1)
Quarter: 2021Q4

REPORT INFORMATION
  Report Type: Spontaneous
  Country: US (occurrence: US)
  Receive Date: 20211223
  Receipt Date: 20211223
  Transmission Date: 20220303
  Serious: Yes (Other)
  Sender: FDA-Public Use
  Company Number: US-SA-SAC20211221001128

PATIENT
  Age: 7 Year
  Sex: Female

DRUGS (6)
  1. LOVENOX [Suspect]
     Active Substance: ENOXAPARIN SODIUM
     Indication: Limb operation
     Dosage: UNK
     Route: 065
     Dates: start: 201606, end: 2017
  2. BACTRIM [Concomitant]
     Active Substance: SULFAMETHOXAZOLE\TRIMETHOPRIM
     Dosage: UNK
  3. RAPAMYCIN [Concomitant]
     Active Substance: SIROLIMUS
     Indication: Klippel-Trenaunay syndrome
  4. RAPAMYCIN [Concomitant]
     Active Substance: SIROLIMUS
     Indication: Malformation venous
     Dosage: 0.8 MG, BID
  5. RAPAMYCIN [Concomitant]
     Active Substance: SIROLIMUS
     Dosage: 0.9 MG, BID
     Dates: start: 20200102
  6. RAPAMYCIN [Concomitant]
     Active Substance: SIROLIMUS
     Dosage: 1.5 MG, BID

REACTIONS (4)
  - Lymphangioma [Unknown]
  - Haemorrhage [Unknown]
  - Abdominal mass [Unknown]
  - Haemoglobin decreased [Unknown]

NARRATIVE: CASE EVENT DATE: 20160101
